FAERS Safety Report 5329055-7 (Version None)
Quarter: 2007Q2

REPORT INFORMATION
  Report Type: 
  Country: None (occurrence: None)
  Receive Date: 20070518
  Receipt Date: 20070507
  Transmission Date: 20071010
  Serious: Yes (Life-Threatening, Disabling, Other)
  Sender: FDA-Public Use
  Company Number: DE-PFIZER INC-2006097931

PATIENT
  Sex: Female
  Weight: 75 kg

DRUGS (9)
  1. LYRICA [Suspect]
     Indication: ARTHRALGIA
     Route: 048
     Dates: start: 20050101, end: 20060907
  2. LYRICA [Suspect]
     Indication: PAIN
  3. CELEBREX [Concomitant]
     Route: 048
  4. SIMVASTATIN [Concomitant]
  5. PANTOZOL [Concomitant]
  6. JODTHYROX [Concomitant]
  7. OXYGESIC [Concomitant]
  8. AMITRIPTYLINE HCL [Concomitant]
  9. VALORON N [Concomitant]
     Route: 048

REACTIONS (1)
  - LYMPHANGIOMA [None]
